FAERS Safety Report 8196325-7 (Version None)
Quarter: 2012Q1

REPORT INFORMATION
  Report Type: 
  Country: None (occurrence: None)
  Receive Date: 20120306
  Receipt Date: 20120224
  Transmission Date: 20120608
  Serious: Yes (Disabling)
  Sender: FDA-Public Use
  Company Number: 2012SP010710

PATIENT
  Age: 15 Year
  Sex: Female

DRUGS (3)
  1. LIDOCAINE [Concomitant]
  2. NEXPLANON [Suspect]
     Indication: CONTRACEPTION
     Dosage: 68 MG; SC
     Route: 058
     Dates: start: 20120123, end: 20120208
  3. OVRANETTE [Concomitant]

REACTIONS (1)
  - URTICARIA [None]
